FAERS Safety Report 23360719 (Version 1)
Quarter: 2024Q1

REPORT INFORMATION
  Report Type: Report from Study
  Country: PL (occurrence: PL)
  Receive Date: 20240103
  Receipt Date: 20240103
  Transmission Date: 20240410
  Serious: Yes (Other)
  Sender: FDA-Public Use
  Company Number: PL-SUN PHARMACEUTICAL INDUSTRIES LTD-2023R1-426013

PATIENT

DRUGS (8)
  1. FUROSEMIDE [Suspect]
     Active Substance: FUROSEMIDE
     Indication: Aortic valve disease
     Route: 042
  2. FUROSEMIDE [Suspect]
     Active Substance: FUROSEMIDE
     Indication: Coronary artery disease
  3. PROPOFOL [Suspect]
     Active Substance: PROPOFOL
     Indication: Coronary artery disease
     Route: 042
  4. PROPOFOL [Suspect]
     Active Substance: PROPOFOL
     Indication: Aortic valve disease
  5. SUFENTANIL [Suspect]
     Active Substance: SUFENTANIL
     Indication: Aortic valve disease
     Route: 042
  6. SUFENTANIL [Suspect]
     Active Substance: SUFENTANIL
     Indication: Coronary artery disease
  7. URAPIDIL [Suspect]
     Active Substance: URAPIDIL
     Indication: Coronary artery disease
     Route: 042
  8. URAPIDIL [Suspect]
     Active Substance: URAPIDIL
     Indication: Aortic valve disease

REACTIONS (1)
  - Blood magnesium increased [Unknown]
